FAERS Safety Report 5753854-0 (Version None)
Quarter: 2008Q2

REPORT INFORMATION
  Report Type: 
  Country: None (occurrence: None)
  Receive Date: 20080530
  Receipt Date: 20080522
  Transmission Date: 20081010
  Serious: Yes (Hospitalization)
  Sender: FDA-Public Use
  Company Number: US-GILEAD-2008-0014926

PATIENT
  Sex: Female
  Weight: 91.708 kg

DRUGS (7)
  1. TRUVADA [Suspect]
     Indication: HIV INFECTION
     Route: 048
     Dates: start: 20070629
  2. PREZISTA [Suspect]
     Indication: HIV INFECTION
     Route: 048
     Dates: start: 20070629
  3. RITONAVIR [Suspect]
     Indication: HIV INFECTION
     Route: 048
     Dates: start: 20070629
  4. CYMBALTA [Concomitant]
     Indication: DEPRESSION
     Route: 048
  5. MULTI-VITAMIN [Concomitant]
     Indication: MEDICAL DIET
     Route: 048
  6. ORTHO-NOVUM [Concomitant]
     Indication: CONTRACEPTION
     Route: 048
  7. HYOSCYAMINE SULFATE [Concomitant]
     Route: 048
     Dates: start: 20070905

REACTIONS (1)
  - ANAEMIA [None]
